FAERS Safety Report 5474108-6 (Version None)
Quarter: 2007Q4

REPORT INFORMATION
  Report Type: 
  Country: None (occurrence: None)
  Receive Date: 20071002
  Receipt Date: 20070928
  Transmission Date: 20080405
  Serious: Yes (Other)
  Sender: FDA-Public Use
  Company Number: FRWYE238829AUG07

PATIENT
  Age: 58 Year
  Sex: Female
  Weight: 71 kg

DRUGS (6)
  1. RAPAMUNE [Suspect]
     Indication: PROPHYLAXIS AGAINST TRANSPLANT REJECTION
     Route: 048
     Dates: start: 20070110, end: 20070829
  2. UN-ALFA [Concomitant]
     Route: 048
     Dates: start: 20040615
  3. TAHOR [Concomitant]
     Route: 048
     Dates: start: 19990601
  4. PIASCLEDINE [Concomitant]
     Route: 048
     Dates: start: 19970101
  5. TENORMIN [Concomitant]
     Route: 048
     Dates: start: 19950112
  6. LASIX [Concomitant]
     Route: 048
     Dates: start: 19961001

REACTIONS (2)
  - C-REACTIVE PROTEIN INCREASED [None]
  - INTERSTITIAL LUNG DISEASE [None]
